FAERS Safety Report 24460519 (Version 1)
Quarter: 2024Q4

REPORT INFORMATION
  Report Type: Spontaneous
  Country: US (occurrence: None)
  Receive Date: 20241017
  Receipt Date: 20241017
  Transmission Date: 20250114
  Serious: Yes (Other)
  Sender: Public
  Company Number: None

PATIENT
  Age: 57 Year
  Sex: Male
  Weight: 77.85 kg

DRUGS (11)
  1. ARIPIPRAZOLE [Suspect]
     Active Substance: ARIPIPRAZOLE
     Indication: Drug therapy
     Dosage: OTHER QUANTITY : 1 TABLET(S);?
     Route: 048
  2. MORPHINE [Concomitant]
     Active Substance: MORPHINE
  3. ADDERALL [Concomitant]
     Active Substance: AMPHETAMINE ASPARTATE\AMPHETAMINE SULFATE\DEXTROAMPHETAMINE SACCHARATE\DEXTROAMPHETAMINE SULFATE
  4. TESTOSTERONE [Concomitant]
     Active Substance: TESTOSTERONE
  5. TRAZODONE [Concomitant]
     Active Substance: TRAZODONE HYDROCHLORIDE
  6. rovasustatin [Concomitant]
  7. DULOXETINE [Concomitant]
     Active Substance: DULOXETINE
  8. CELECOXIB [Concomitant]
     Active Substance: CELECOXIB
  9. METFORMIN [Concomitant]
     Active Substance: METFORMIN HYDROCHLORIDE
  10. LISINOPRIL [Concomitant]
     Active Substance: LISINOPRIL
  11. ZYRTEC [Concomitant]
     Active Substance: CETIRIZINE HYDROCHLORIDE

REACTIONS (2)
  - Tardive dyskinesia [None]
  - Therapy cessation [None]

NARRATIVE: CASE EVENT DATE: 20240801
